FAERS Safety Report 7126653-5 (Version None)
Quarter: 2010Q4

REPORT INFORMATION
  Report Type: 
  Country: None (occurrence: None)
  Receive Date: 20101129
  Receipt Date: 20101117
  Transmission Date: 20110411
  Serious: Yes (Other)
  Sender: FDA-Public Use
  Company Number: PHHY2010US75480

PATIENT
  Sex: Male

DRUGS (4)
  1. GLEEVEC [Suspect]
     Indication: CHRONIC MYELOID LEUKAEMIA
     Dosage: 400 MG, QD
     Route: 048
     Dates: start: 20100922, end: 20101015
  2. ALLOPURINOL [Concomitant]
  3. ALEVE (CAPLET) [Concomitant]
  4. NIACIN [Concomitant]

REACTIONS (5)
  - DERMATITIS EXFOLIATIVE [None]
  - ELECTROCARDIOGRAM QT PROLONGED [None]
  - FLUID RETENTION [None]
  - RASH [None]
  - WEIGHT INCREASED [None]
